FAERS Safety Report 25849961 (Version 1)
Quarter: 2025Q3

REPORT INFORMATION
  Report Type: Spontaneous
  Country: US (occurrence: US)
  Receive Date: 20250926
  Receipt Date: 20250926
  Transmission Date: 20251020
  Serious: Yes (Other)
  Sender: STRIDES
  Company Number: US-STRIDES ARCOLAB LIMITED-2025SP008588

PATIENT
  Sex: Male

DRUGS (13)
  1. SERTRALINE [Suspect]
     Active Substance: SERTRALINE HYDROCHLORIDE
     Indication: Generalised anxiety disorder
     Route: 065
  2. BUSPIRONE HYDROCHLORIDE [Suspect]
     Active Substance: BUSPIRONE HYDROCHLORIDE
     Indication: Generalised anxiety disorder
     Route: 065
  3. BUSPIRONE HYDROCHLORIDE [Suspect]
     Active Substance: BUSPIRONE HYDROCHLORIDE
     Indication: Self-destructive behaviour
     Route: 065
  4. HYDROXYZINE HYDROCHLORIDE [Suspect]
     Active Substance: HYDROXYZINE HYDROCHLORIDE
     Indication: Generalised anxiety disorder
     Route: 065
  5. GUANFACINE [Suspect]
     Active Substance: GUANFACINE
     Indication: Generalised anxiety disorder
     Route: 065
  6. LORAZEPAM [Suspect]
     Active Substance: LORAZEPAM
     Indication: Generalised anxiety disorder
     Route: 065
  7. ZIPRASIDONE [Suspect]
     Active Substance: ZIPRASIDONE
     Indication: Generalised anxiety disorder
     Route: 065
  8. ZIPRASIDONE [Suspect]
     Active Substance: ZIPRASIDONE
     Indication: Self-destructive behaviour
     Route: 065
  9. ZIPRASIDONE [Suspect]
     Active Substance: ZIPRASIDONE
     Route: 065
  10. OXCARBAZEPINE [Suspect]
     Active Substance: OXCARBAZEPINE
     Indication: Generalised anxiety disorder
     Route: 065
  11. OXCARBAZEPINE [Suspect]
     Active Substance: OXCARBAZEPINE
     Indication: Self-destructive behaviour
     Route: 065
  12. RISPERIDONE [Concomitant]
     Active Substance: RISPERIDONE
     Indication: Generalised anxiety disorder
     Route: 065
  13. RISPERIDONE [Concomitant]
     Active Substance: RISPERIDONE
     Route: 065

REACTIONS (2)
  - Drug ineffective for unapproved indication [Unknown]
  - Condition aggravated [Unknown]
